FAERS Safety Report 10168235 (Version 1)
Quarter: 2014Q2

REPORT INFORMATION
  Report Type: Spontaneous
  Country: AU (occurrence: AU)
  Receive Date: 20140512
  Receipt Date: 20140512
  Transmission Date: 20141212
  Serious: Yes (Hospitalization)
  Sender: FDA-Public Use
  Company Number: AU-MYLANLABS-2014S1010280

PATIENT
  Age: 76 Year
  Sex: Female
  Weight: 65.8 kg

DRUGS (22)
  1. ENDEP [Suspect]
     Indication: INSOMNIA
     Route: 048
  2. LYRICA [Suspect]
     Indication: PAIN
     Route: 048
  3. LYRICA [Suspect]
     Indication: PAIN
     Route: 048
  4. ALDACTONE [Concomitant]
     Indication: CONGESTIVE CARDIOMYOPATHY
     Dosage: TWICE A DAY, 2 IN THE MORNING AND 1 AT NIGHT
     Route: 048
  5. AMIODARONE HYDROCHLORIDE [Concomitant]
     Indication: ATRIAL FIBRILLATION
     Dosage: 1 IN THE MORNING
     Route: 048
  6. ARANESP [Concomitant]
     Indication: ANAEMIA
     Dosage: 40MCG/0.4ML
     Route: 058
  7. ARANESP [Concomitant]
     Indication: RENAL FAILURE CHRONIC
     Dosage: 40MCG/0.4ML
     Route: 058
  8. CARTIA [Concomitant]
     Indication: CONGESTIVE CARDIOMYOPATHY
     Dosage: 1 IN THE MORNING WITH MEALS
     Route: 048
  9. COUMADIN [Concomitant]
     Indication: ATRIAL FIBRILLATION
     Dosage: AT NIGHT AS DIRECTED
     Route: 048
  10. COVERSYL [Concomitant]
     Indication: HYPERTENSION
     Dosage: 1 IN THE MORNING
     Route: 048
  11. LASIX [Concomitant]
     Indication: CONGESTIVE CARDIOMYOPATHY
     Dosage: TWICE A DAY, 2 MORNING AND 1 MIDDAY
     Route: 048
  12. LIPITOR [Concomitant]
     Indication: HYPERCHOLESTEROLAEMIA
     Dosage: 1 IN THE MORNING
     Route: 048
  13. LOSEC [Concomitant]
     Indication: PHARYNGEAL INFLAMMATION
     Dosage: 1 IN THE MORNING
     Route: 048
  14. MYLANTA [Concomitant]
     Indication: RENAL IMPAIRMENT
     Dosage: 400MG-400MG-30MG/5ML
     Route: 048
  15. OSTELIN VITAMIN D [Concomitant]
     Indication: VITAMIN D DEFICIENCY
     Dosage: 1 DAILY
     Route: 048
  16. PANADOL OSTEO [Concomitant]
     Indication: ARTHRALGIA
     Dosage: 665 MG (2-3 TIMES A DAY IF REQUIRED)
     Route: 048
  17. SERETIDE MDI [Concomitant]
     Indication: CHRONIC OBSTRUCTIVE PULMONARY DISEASE
     Dosage: 250MCG-25MCG/DOSE (2 DF TWICE A DAY IF REQUIRED)
     Route: 055
  18. SLOW-K [Concomitant]
     Indication: CARDIAC FAILURE
     Dosage: TWIICE A DAY WITH MEALS
     Route: 048
  19. SPIRIVA [Concomitant]
     Indication: CHRONIC OBSTRUCTIVE PULMONARY DISEASE
     Dosage: INHALE ONCE DAILY AT THE SAME TIME EACH DAY
     Route: 055
  20. THYROXINE SODIUM [Concomitant]
     Indication: PRIMARY HYPOTHYROIDISM
     Dosage: 1 IN THE MORNING
     Route: 048
  21. TRAMADOL HYDROCHLORIDE [Concomitant]
     Indication: SCIATICA
     Dosage: 1-2 DF, 4 TIMES DAILY
     Route: 048
  22. VENTOLIN [Concomitant]
     Indication: CHRONIC OBSTRUCTIVE PULMONARY DISEASE
     Dosage: 100MCG/DOSE (2 DF, FOUR HOURLY IF REQUIRED)
     Route: 055

REACTIONS (2)
  - Confusional state [Recovered/Resolved]
  - Myoclonus [Recovered/Resolved]
